FAERS Safety Report 14125076 (Version 2)
Quarter: 2017Q4

REPORT INFORMATION
  Report Type: Spontaneous
  Country: US (occurrence: US)
  Receive Date: 20171025
  Receipt Date: 20171204
  Transmission Date: 20180321
  Serious: Yes (Disabling, Other)
  Sender: FDA-Public Use
  Company Number: US-REGENERON PHARMACEUTICALS, INC.-2017-22772

PATIENT

DRUGS (2)
  1. EYLEA [Suspect]
     Active Substance: AFLIBERCEPT
     Dosage: 2 MG, LAST DOSE
     Route: 031
     Dates: start: 20170919, end: 20170919
  2. EYLEA [Suspect]
     Active Substance: AFLIBERCEPT
     Indication: AGE-RELATED MACULAR DEGENERATION
     Dosage: 2 MG, Q5 WKS, OD
     Route: 031
     Dates: start: 20150906, end: 20170923

REACTIONS (5)
  - Blindness unilateral [Not Recovered/Not Resolved]
  - Non-infectious endophthalmitis [Not Recovered/Not Resolved]
  - Inadequate aseptic technique in use of product [Unknown]
  - Blindness unilateral [Unknown]
  - Injection site pain [Unknown]

NARRATIVE: CASE EVENT DATE: 20170919
